FAERS Safety Report 5676913-X (Version None)
Quarter: 2008Q1

REPORT INFORMATION
  Report Type: 
  Country: None (occurrence: None)
  Receive Date: 20080324
  Receipt Date: 20080310
  Transmission Date: 20080703
  Serious: Yes (Other)
  Sender: FDA-Public Use
  Company Number: US-BAYER-200811001BCC

PATIENT
  Age: 18 Year
  Sex: Female

DRUGS (1)
  1. MIDOL [Suspect]
     Indication: SELF INJURIOUS BEHAVIOUR
     Route: 048
     Dates: start: 20080310

REACTIONS (1)
  - SOMNOLENCE [None]
